FAERS Safety Report 7977257-3 (Version None)
Quarter: 2011Q4

REPORT INFORMATION
  Report Type: 
  Country: None (occurrence: None)
  Receive Date: 20111213
  Receipt Date: 20111109
  Transmission Date: 20120403
  Serious: No
  Sender: FDA-Public Use
  Company Number: US-AMGEN-USASP2011058788

PATIENT
  Age: 32 Year
  Sex: Female

DRUGS (1)
  1. ENBREL [Suspect]
     Indication: ANKYLOSING SPONDYLITIS
     Dosage: 50 MG, QWK
     Dates: start: 20091101

REACTIONS (6)
  - FUNGAL INFECTION [None]
  - RASH MACULAR [None]
  - RASH [None]
  - WEIGHT INCREASED [None]
  - PRURITUS [None]
  - ORAL PAIN [None]
